FAERS Safety Report 7518112-2 (Version None)
Quarter: 2011Q2

REPORT INFORMATION
  Report Type: 
  Country: None (occurrence: None)
  Receive Date: 20110523
  Receipt Date: 20110509
  Transmission Date: 20111010
  Serious: Yes (Hospitalization, Other)
  Sender: FDA-Public Use
  Company Number: 2011MA005707

PATIENT
  Age: 36 Year
  Sex: Female

DRUGS (1)
  1. TRIAMCINOLONE ACETONIDE [Suspect]
     Dosage: 1X, INJ

REACTIONS (5)
  - RETINAL ARTERY OCCLUSION [None]
  - MYDRIASIS [None]
  - RETINAL ARTERY EMBOLISM [None]
  - IRITIS [None]
  - POST PROCEDURAL COMPLICATION [None]
